FAERS Safety Report 9465800 (Version 1)
Quarter: 2013Q3

REPORT INFORMATION
  Report Type: Spontaneous
  Country: US (occurrence: US)
  Receive Date: 20130820
  Receipt Date: 20130820
  Transmission Date: 20140515
  Serious: Yes (Other)
  Sender: FDA-Public Use
  Company Number: US-PFIZER INC-2013237370

PATIENT
  Age: 48 Year
  Sex: Male
  Weight: 84.81 kg

DRUGS (1)
  1. VIAGRA [Suspect]
     Indication: ERECTILE DYSFUNCTION
     Dosage: 100 MG, AS NEEDED
     Route: 048
     Dates: start: 2007

REACTIONS (4)
  - Accident at work [Unknown]
  - Limb injury [Unknown]
  - Joint injury [Unknown]
  - Limb injury [Unknown]
